FAERS Safety Report 11393306 (Version 3)
Quarter: 2015Q4

REPORT INFORMATION
  Report Type: Spontaneous
  Country: US (occurrence: US)
  Receive Date: 20150818
  Receipt Date: 20151028
  Transmission Date: 20160304
  Serious: Yes (Hospitalization, Other)
  Sender: FDA-Public Use
  Company Number: US-INCYTE CORPORATION-2015IN003979

PATIENT
  Sex: Male

DRUGS (7)
  1. JAKAFI [Suspect]
     Active Substance: RUXOLITINIB
     Dosage: UNK
     Route: 048
     Dates: start: 20150617, end: 201507
  2. ASCORBIC ACID. [Concomitant]
     Active Substance: ASCORBIC ACID
     Dosage: 500 MG, QD
     Route: 048
  3. VITAMIN D [Concomitant]
     Active Substance: CHOLECALCIFEROL
     Dosage: TAKE ONE CAPSULE WEEKLY
     Route: 048
  4. VITAMINS NOS [Concomitant]
     Active Substance: VITAMINS
     Dosage: UNK
  5. VITAMIN B-6 [Concomitant]
     Active Substance: PYRIDOXINE
     Dosage: 50 MG, QD
  6. VITAMIN A [Concomitant]
     Active Substance: VITAMIN A
     Dosage: TAKE ONE TABLET DAILY
     Route: 048
  7. JAKAFI [Suspect]
     Active Substance: RUXOLITINIB
     Indication: MYELOFIBROSIS
     Dosage: 20 MG QD AND 20 MG BID ON ALTERNATING DAYS
     Route: 048
     Dates: start: 201505, end: 20150731

REACTIONS (11)
  - Pleural effusion [Recovering/Resolving]
  - Splenomegaly [Unknown]
  - Anaemia [Recovering/Resolving]
  - Lymphadenopathy [Recovering/Resolving]
  - Asthenia [Not Recovered/Not Resolved]
  - Tuberculosis [Recovering/Resolving]
  - Pericardial effusion [Unknown]
  - Cough [Not Recovered/Not Resolved]
  - Hepatomegaly [Unknown]
  - Pruritus [Recovering/Resolving]
  - Pyrexia [Recovering/Resolving]

NARRATIVE: CASE EVENT DATE: 2015
